FAERS Safety Report 5026633-X (Version None)
Quarter: 2006Q2

REPORT INFORMATION
  Report Type: 
  Country: None (occurrence: None)
  Receive Date: 20060608
  Receipt Date: 20060530
  Transmission Date: 20061013
  Serious: Yes (Death, Other)
  Sender: FDA-Public Use
  Company Number: 087-20785-06050891

PATIENT
  Sex: Female

DRUGS (9)
  1. THALIDOMIDE (THALIDOMIDE) (CAPSULES) [Suspect]
     Indication: MULTIPLE MYELOMA
     Dosage: SEE IMAGE, ORAL
     Route: 048
     Dates: start: 20010101, end: 20011214
  2. THALIDOMIDE (THALIDOMIDE) (CAPSULES) [Suspect]
     Indication: MULTIPLE MYELOMA
     Dosage: SEE IMAGE, ORAL
     Route: 048
     Dates: start: 20020109, end: 20020301
  3. DEXAMETHASONE [Suspect]
     Indication: MULTIPLE MYELOMA
     Dates: start: 20020101
  4. VINCRISTINE [Suspect]
     Indication: MULTIPLE MYELOMA
     Dates: start: 20020301
  5. DOXORUBICIN (DOXORUBICIN) [Suspect]
     Indication: MULTIPLE MYELOMA
     Dates: start: 20020301
  6. CYCLOPHOSPHAMIDE [Suspect]
     Indication: MULTIPLE MYELOMA
     Dosage: MONTHLY
  7. PREDNISOLONE [Suspect]
     Indication: MULTIPLE MYELOMA
     Dosage: MONTHLY
  8. CYTARABINE [Suspect]
     Indication: MULTIPLE MYELOMA
     Dosage: INTRATHECAL
     Route: 037
  9. METHOTREXATE [Suspect]
     Dosage: INTRATHECAL
     Route: 037

REACTIONS (11)
  - BONE PAIN [None]
  - DYSPHAGIA [None]
  - DYSPHONIA [None]
  - GENERAL PHYSICAL HEALTH DETERIORATION [None]
  - HERPES ZOSTER [None]
  - HYPOAESTHESIA ORAL [None]
  - MALIGNANT NEOPLASM PROGRESSION [None]
  - MENINGEAL DISORDER [None]
  - MULTIPLE MYELOMA [None]
  - NEUTROPENIA [None]
  - PLASMACYTOMA [None]
